FAERS Safety Report 23927445 (Version 1)
Quarter: 2024Q2

REPORT INFORMATION
  Report Type: Spontaneous
  Country: US (occurrence: US)
  Receive Date: 20240531
  Receipt Date: 20240531
  Transmission Date: 20240716
  Serious: No
  Sender: FDA-Public Use
  Company Number: US-RADIUS HEALTH INC.-2023US002626

PATIENT
  Age: 60 Year
  Sex: Female

DRUGS (7)
  1. TYMLOS [Suspect]
     Active Substance: ABALOPARATIDE
     Indication: Osteoporotic fracture
     Dosage: 80 MICROGRAM, QD
     Route: 058
     Dates: start: 20230508
  2. TYMLOS [Suspect]
     Active Substance: ABALOPARATIDE
     Indication: Senile osteoporosis
  3. VITAMIN D3 [Concomitant]
     Active Substance: CHOLECALCIFEROL
     Indication: Product used for unknown indication
  4. METHYLPHENIDATE [Concomitant]
     Active Substance: METHYLPHENIDATE
     Indication: Product used for unknown indication
     Dosage: 20 MG
  5. METHYLPHENIDATE [Concomitant]
     Active Substance: METHYLPHENIDATE
     Dosage: 30 MG
  6. CYCLOBENZAPRINE HYDROCHLORIDE [Concomitant]
     Active Substance: CYCLOBENZAPRINE HYDROCHLORIDE
     Indication: Product used for unknown indication
  7. WELLBUTRIN XL [Concomitant]
     Active Substance: BUPROPION HYDROCHLORIDE
     Indication: Product used for unknown indication

REACTIONS (12)
  - Hypotension [Recovering/Resolving]
  - Dysuria [Recovering/Resolving]
  - Bladder pain [Recovering/Resolving]
  - Urine odour abnormal [Recovering/Resolving]
  - Dizziness postural [Not Recovered/Not Resolved]
  - Dizziness [Recovering/Resolving]
  - Fatigue [Recovering/Resolving]
  - Injection site pain [Unknown]
  - Nausea [Unknown]
  - Palpitations [Unknown]
  - Heart rate increased [Not Recovered/Not Resolved]
  - Incorrect product administration duration [Unknown]

NARRATIVE: CASE EVENT DATE: 20230508
